FAERS Safety Report 7683824-7 (Version None)
Quarter: 2011Q3

REPORT INFORMATION
  Report Type: 
  Country: None (occurrence: None)
  Receive Date: 20110815
  Receipt Date: 20110810
  Transmission Date: 20111222
  Serious: Yes (Hospitalization, Other)
  Sender: FDA-Public Use
  Company Number: US-PFIZER INC-2011048341

PATIENT
  Sex: Female
  Weight: 66 kg

DRUGS (6)
  1. ZOLOFT [Suspect]
     Dosage: UNK
     Route: 048
     Dates: start: 20100801, end: 20110201
  2. SERTRALINE HYDROCHLORIDE [Suspect]
     Indication: DEPRESSION
     Dosage: 100 MG, 2X/DAY
     Route: 048
     Dates: start: 20110201, end: 20110201
  3. LIPITOR [Suspect]
     Dosage: UNK
  4. PANTOPRAZOLE [Suspect]
     Indication: GASTRITIS
     Dosage: 40 MG, 1X/DAY
     Dates: start: 20110201
  5. ZOLOFT [Suspect]
     Indication: DEPRESSION
     Dosage: 50 MG, UNK
     Route: 048
     Dates: start: 20100801, end: 20110201
  6. PROTONIX [Suspect]
     Indication: GASTRITIS
     Dosage: 40 MG, 1X/DAY
     Route: 048
     Dates: start: 20090601

REACTIONS (14)
  - RASH [None]
  - HEART RATE INCREASED [None]
  - HEPATITIS [None]
  - ANXIETY [None]
  - BLOOD CHOLESTEROL INCREASED [None]
  - ABDOMINAL PAIN UPPER [None]
  - HAEMATEMESIS [None]
  - ARTHRALGIA [None]
  - SWELLING [None]
  - PARAESTHESIA [None]
  - NERVOUSNESS [None]
  - PRURITUS [None]
  - DRUG INEFFECTIVE [None]
  - FEAR [None]
